FAERS Safety Report 22972981 (Version 3)
Quarter: 2023Q4

REPORT INFORMATION
  Report Type: Report from Study
  Country: DE (occurrence: DE)
  Receive Date: 20230922
  Receipt Date: 20231109
  Transmission Date: 20240110
  Serious: Yes (Hospitalization, Other)
  Sender: FDA-Public Use
  Company Number: DE-SANDOZ-SDZ2023DE032189

PATIENT
  Age: 41 Year
  Sex: Male
  Weight: 77 kg

DRUGS (3)
  1. FILGRASTIM [Suspect]
     Active Substance: FILGRASTIM
     Dosage: UNK, 4 X 48 MU/0.5ML
     Route: 065
     Dates: end: 20130827
  2. FILGRASTIM [Suspect]
     Active Substance: FILGRASTIM
     Indication: Haematopoietic stem cell mobilisation
     Dosage: UNK, 4 X 30 MU/0.5ML
     Route: 058
     Dates: start: 20130823, end: 20130827
  3. LEVOTHYROXINE [Concomitant]
     Active Substance: LEVOTHYROXINE
     Indication: Hypothyroidism
     Dosage: 125 UG 1-0-0, EXCEPT ON SUNDAYS
     Route: 048
     Dates: start: 200001

REACTIONS (3)
  - Clear cell renal cell carcinoma [Unknown]
  - Hyperuricaemia [Recovered/Resolved with Sequelae]
  - Myalgia [Recovered/Resolved]

NARRATIVE: CASE EVENT DATE: 20180201
